FAERS Safety Report 17428970 (Version 1)
Quarter: 2020Q1

REPORT INFORMATION
  Report Type: Report from Study
  Country: US (occurrence: US)
  Receive Date: 20200218
  Receipt Date: 20200218
  Transmission Date: 20200409
  Serious: No
  Sender: FDA-Public Use
  Company Number: NVSC2020US039636

PATIENT
  Age: 68 Year
  Sex: Male

DRUGS (2)
  1. ENTRESTO [Suspect]
     Active Substance: SACUBITRIL\VALSARTAN
     Indication: CARDIAC FAILURE
     Dosage: 50 MG, BID (24MG SACUBITRIL /26MGVALSARTAN)
     Route: 048
     Dates: start: 201906
  2. ENTRESTO [Suspect]
     Active Substance: SACUBITRIL\VALSARTAN
     Dosage: 1 DF, OTHER (TAKING 1 IN AM AND 2 IN PM) (24MG SACUBITRIL /26MGVALSARTAN)
     Route: 048
     Dates: start: 20200107

REACTIONS (1)
  - Mitral valve disease [Unknown]

NARRATIVE: CASE EVENT DATE: 20200107
